FAERS Safety Report 16162376 (Version 1)
Quarter: 2019Q2

REPORT INFORMATION
  Report Type: Spontaneous
  Country: US (occurrence: US)
  Receive Date: 20190404
  Receipt Date: 20190404
  Transmission Date: 20190711
  Serious: Yes (Death)
  Sender: FDA-Public Use
  Company Number: None

PATIENT
  Age: 79 Year
  Sex: Male
  Weight: 99 kg

DRUGS (3)
  1. METROPROLO [Concomitant]
  2. LUPRON [Suspect]
     Active Substance: LEUPROLIDE ACETATE
     Indication: PROSTATE CANCER
     Dates: start: 20160527, end: 20181209
  3. SIMVASTSTION [Concomitant]

REACTIONS (3)
  - Cerebrovascular accident [None]
  - Accidental death [None]
  - International normalised ratio decreased [None]

NARRATIVE: CASE EVENT DATE: 20181207
